FAERS Safety Report 6468914-9 (Version None)
Quarter: 2009Q4

REPORT INFORMATION
  Report Type: 
  Country: None (occurrence: None)
  Receive Date: 20091203
  Receipt Date: 20090225
  Transmission Date: 20100525
  Serious: Yes (Hospitalization)
  Sender: FDA-Public Use
  Company Number: JP-ELI_LILLY_AND_COMPANY-JP200605003945

PATIENT
  Age: 58 Year
  Sex: Male
  Weight: 50 kg

DRUGS (8)
  1. HUMALOG [Suspect]
     Indication: DIABETES MELLITUS
     Dates: start: 20020301, end: 20030601
  2. HUMULIN N [Suspect]
     Indication: DIABETES MELLITUS
  3. ASPIRIN [Concomitant]
     Dosage: 100 MG, DAILY (1/D)
     Route: 048
  4. FUROSEMIDE [Concomitant]
     Dosage: 80 MG, DAILY (1/D)
  5. FAMOTIDINE [Concomitant]
     Dosage: 10 MG, DAILY (1/D)
  6. DILAZEP [Concomitant]
     Dosage: 300 MG, DAILY (1/D)
  7. CALCIUM CARBONATE [Concomitant]
     Dosage: 3 G, DAILY (1/D)
  8. KREMEZIN [Concomitant]
     Dosage: 6 G, DAILY (1/D)
     Route: 048

REACTIONS (2)
  - ANTI-INSULIN ANTIBODY POSITIVE [None]
  - DIABETES MELLITUS INADEQUATE CONTROL [None]
